FAERS Safety Report 5016727-7 (Version None)
Quarter: 2006Q2

REPORT INFORMATION
  Report Type: 
  Country: None (occurrence: None)
  Receive Date: 20060602
  Receipt Date: 20040604
  Transmission Date: 20061013
  Serious: Yes (Other)
  Sender: FDA-Public Use
  Company Number: US-GLAXOSMITHKLINE-A0574496A

PATIENT
  Age: 43 Year
  Sex: Male

DRUGS (1)
  1. AUGMENTIN XR [Suspect]
     Indication: OTITIS MEDIA
     Dosage: 2TAB TWICE PER DAY
     Route: 048
     Dates: start: 20040510, end: 20040518

REACTIONS (1)
  - LIVER FUNCTION TEST ABNORMAL [None]
